FAERS Safety Report 9913399 (Version 1)
Quarter: 2014Q1

REPORT INFORMATION
  Report Type: Report from Study
  Country: US (occurrence: US)
  Receive Date: 20140220
  Receipt Date: 20140220
  Transmission Date: 20141002
  Serious: Yes (Death)
  Sender: FDA-Public Use
  Company Number: US-ASTELLAS-2014US001725

PATIENT
  Sex: Female

DRUGS (6)
  1. ERLOTINIB TABLET [Suspect]
     Indication: PRODUCT USED FOR UNKNOWN INDICATION
     Dosage: 150 MG, QID, 28 DAYS CYCLE
     Route: 048
  2. AVASTIN /01555201/ [Suspect]
     Indication: NEOPLASM MALIGNANT
     Dosage: 682 MG, IN 100 ML SALINE, 1 IN 2 WKS
     Route: 042
     Dates: start: 20101014
  3. AVASTIN /01555201/ [Suspect]
     Dosage: 682 MG, IN 100 ML SALINE, 1 IN 2 WKS
     Route: 065
     Dates: start: 20101028
  4. AVASTIN /01555201/ [Suspect]
     Dosage: 10 MG/KG, UNKNOWN/D
     Route: 042
     Dates: start: 20100430
  5. AVASTIN /01555201/ [Suspect]
     Dosage: UNK
  6. GEMZAR [Concomitant]
     Indication: PRODUCT USED FOR UNKNOWN INDICATION
     Dosage: UNK
     Route: 065

REACTIONS (10)
  - Overdose [Unknown]
  - Inappropriate schedule of drug administration [Unknown]
  - Death [Fatal]
  - Weight increased [Unknown]
  - Blood pressure increased [Unknown]
  - Poor quality sleep [Recovered/Resolved]
  - Headache [Recovered/Resolved]
  - Nausea [Unknown]
  - Gastrooesophageal reflux disease [Unknown]
  - Hypoaesthesia [Unknown]
